FAERS Safety Report 21102534 (Version 1)
Quarter: 2022Q3

REPORT INFORMATION
  Report Type: Spontaneous
  Country: US (occurrence: US)
  Receive Date: 20220719
  Receipt Date: 20220719
  Transmission Date: 20221027
  Serious: Yes (Hospitalization)
  Sender: FDA-Public Use
  Company Number: US-BoehringerIngelheim-2022-BI-182587

PATIENT
  Sex: Female

DRUGS (1)
  1. SPIRIVA RESPIMAT [Suspect]
     Active Substance: TIOTROPIUM BROMIDE
     Indication: Oxygen saturation decreased
     Dosage: 2 PUFFS
     Dates: start: 2022

REACTIONS (3)
  - Dyspnoea [Unknown]
  - Syncope [Unknown]
  - Off label use [Unknown]
